FAERS Safety Report 9547407 (Version 1)
Quarter: 2013Q3

REPORT INFORMATION
  Report Type: Spontaneous
  Country: US (occurrence: US)
  Receive Date: 20130924
  Receipt Date: 20130924
  Transmission Date: 20140515
  Serious: Yes (Hospitalization)
  Sender: FDA-Public Use
  Company Number: PHHY2013US103641

PATIENT
  Age: 55 Year
  Sex: Male

DRUGS (2)
  1. BENZYLPENICILLIN [Suspect]
     Indication: PARESIS
     Route: 042
  2. LEVETIRACETAM [Concomitant]

REACTIONS (9)
  - Jarisch-Herxheimer reaction [Recovered/Resolved]
  - Depressed level of consciousness [Recovered/Resolved]
  - Tachycardia [Recovered/Resolved]
  - Hypertension [Recovered/Resolved]
  - Convulsion [Recovered/Resolved]
  - Rash macular [Recovered/Resolved]
  - Neutrophilia [Recovered/Resolved]
  - Pyrexia [Recovered/Resolved]
  - CSF test abnormal [Recovered/Resolved]
